FAERS Safety Report 7065558-5 (Version None)
Quarter: 2010Q4

REPORT INFORMATION
  Report Type: 
  Country: None (occurrence: None)
  Receive Date: 20101019
  Receipt Date: 20101005
  Transmission Date: 20110411
  Serious: Yes (Death, Life-Threatening, Hospitalization)
  Sender: FDA-Public Use
  Company Number: 2010AL000107

PATIENT
  Age: 45 Year
  Sex: Female
  Weight: 105.9 kg

DRUGS (3)
  1. FOLOTYN [Suspect]
     Indication: PERIPHERAL T-CELL LYMPHOMA UNSPECIFIED
     Dosage: 15 MG/M**2; 1X; IV
     Route: 042
     Dates: start: 20100603, end: 20100603
  2. VITAMIN B-12 [Concomitant]
  3. FOLIC ACID [Concomitant]

REACTIONS (5)
  - DERMATITIS BULLOUS [None]
  - HYPOTENSION [None]
  - PANCYTOPENIA [None]
  - STOMATITIS [None]
  - TOXIC EPIDERMAL NECROLYSIS [None]
